FAERS Safety Report 8069920-3 (Version None)
Quarter: 2012Q1

REPORT INFORMATION
  Report Type: 
  Country: None (occurrence: None)
  Receive Date: 20120125
  Receipt Date: 20120119
  Transmission Date: 20120608
  Serious: Yes (Hospitalization, Other)
  Sender: FDA-Public Use
  Company Number: US-SANOFI-AVENTIS-2012SA004040

PATIENT
  Age: 65 Year
  Sex: Male
  Weight: 104.32 kg

DRUGS (6)
  1. PLAVIX [Suspect]
     Route: 048
     Dates: start: 20090101, end: 20111101
  2. PLAVIX [Suspect]
     Route: 048
     Dates: start: 20000101, end: 20020101
  3. PLAVIX [Suspect]
     Route: 048
     Dates: start: 20120101
  4. PLAVIX [Suspect]
     Route: 048
     Dates: start: 20120101
  5. PLAVIX [Suspect]
     Indication: STENT PLACEMENT
     Route: 048
     Dates: start: 20000101, end: 20020101
  6. PLAVIX [Suspect]
     Route: 048
     Dates: start: 20090101, end: 20111101

REACTIONS (4)
  - VISION BLURRED [None]
  - DRUG INEFFECTIVE [None]
  - HEADACHE [None]
  - CHEST PAIN [None]
